FAERS Safety Report 6181920-7 (Version None)
Quarter: 2009Q2

REPORT INFORMATION
  Report Type: 
  Country: None (occurrence: None)
  Receive Date: 20090505
  Receipt Date: 20090421
  Transmission Date: 20091009
  Serious: Yes (Hospitalization)
  Sender: FDA-Public Use
  Company Number: 234453K09USA

PATIENT
  Age: 61 Year
  Sex: Male
  Weight: 77 kg

DRUGS (4)
  1. REBIF [Suspect]
     Indication: MULTIPLE SCLEROSIS
     Dosage: 44 MCG, 3 IN 1 WEEKS,
     Dates: start: 20060101
  2. DIOVAN [Concomitant]
  3. LIPTOR (ATORVASTATIN/01326101/) [Concomitant]
  4. CYMBALTA [Concomitant]

REACTIONS (4)
  - CEREBROVASCULAR ACCIDENT [None]
  - DIZZINESS [None]
  - FALL [None]
  - INFLUENZA LIKE ILLNESS [None]
